FAERS Safety Report 10901416 (Version 1)
Quarter: 2015Q1

REPORT INFORMATION
  Report Type: Spontaneous
  Country: US (occurrence: None)
  Receive Date: 20150309
  Receipt Date: 20150309
  Transmission Date: 20150721
  Serious: No
  Sender: FDA-Public Use
  Company Number: US-2015CRT000001

PATIENT
  Sex: Female

DRUGS (4)
  1. SPIRONOLACTONE. [Concomitant]
     Active Substance: SPIRONOLACTONE
  2. KORLYM [Concomitant]
     Active Substance: MIFEPRISTONE
  3. MIRENA (LEVONORGESTREL-RELEASING INTRAUTERINE SYSTEM [Concomitant]
  4. KORLYM [Suspect]
     Active Substance: MIFEPRISTONE
     Indication: PRODUCT USED FOR UNKNOWN INDICATION
     Dates: start: 201412, end: 201501

REACTIONS (2)
  - Headache [None]
  - Vaginal haemorrhage [None]

NARRATIVE: CASE EVENT DATE: 20150206
